FAERS Safety Report 11975677 (Version 2)
Quarter: 2016Q1

REPORT INFORMATION
  Report Type: Spontaneous
  Country: MY (occurrence: MY)
  Receive Date: 20160129
  Receipt Date: 20160206
  Transmission Date: 20160526
  Serious: Yes (Other)
  Sender: FDA-Public Use
  Company Number: MY-SUN PHARMACEUTICAL INDUSTRIES LTD-2016RR-110418

PATIENT

DRUGS (5)
  1. CEFTAZIDIME. [Concomitant]
     Active Substance: CEFTAZIDIME
     Indication: KERATOPLASTY
     Dosage: HOURLY
     Route: 061
  2. ACYCLOVIR. [Concomitant]
     Active Substance: ACYCLOVIR
     Indication: KERATOPLASTY
     Dosage: 800 MG, BID
     Route: 048
  3. CIPROFLOXACIN. [Suspect]
     Active Substance: CIPROFLOXACIN
     Indication: KERATOPLASTY
     Dosage: 200 MG, BID
     Route: 065
  4. CIPROFLOXACIN. [Suspect]
     Active Substance: CIPROFLOXACIN
     Indication: KERATOPLASTY
     Dosage: HOURLY
     Route: 061
  5. DOXYCYCLINE. [Concomitant]
     Active Substance: DOXYCYCLINE
     Indication: KERATOPLASTY
     Dosage: 100 MG, BID
     Route: 048

REACTIONS (1)
  - Keratopathy [Recovered/Resolved]
